FAERS Safety Report 22528918 (Version 1)
Quarter: 2023Q2

REPORT INFORMATION
  Report Type: Spontaneous
  Country: US (occurrence: US)
  Receive Date: 20230607
  Receipt Date: 20230607
  Transmission Date: 20230722
  Serious: No
  Sender: FDA-Public Use
  Company Number: US-BIOVITRUM-2023-US-011491

PATIENT
  Age: 55 Year
  Sex: Female

DRUGS (1)
  1. KINERET [Suspect]
     Active Substance: ANAKINRA
     Indication: Rheumatoid arthritis
     Dosage: 100MG ONCE A DAY
     Route: 058
     Dates: start: 20230519

REACTIONS (8)
  - Pruritus [Unknown]
  - Stress [Unknown]
  - Loss of personal independence in daily activities [Unknown]
  - Movement disorder [Unknown]
  - Bone pain [Unknown]
  - Hernia pain [Unknown]
  - Pain [Unknown]
  - Product dose omission issue [Unknown]
